FAERS Safety Report 21641572 (Version 1)
Quarter: 2022Q4

REPORT INFORMATION
  Report Type: Spontaneous
  Country: DE (occurrence: DE)
  Receive Date: 20221125
  Receipt Date: 20221125
  Transmission Date: 20230113
  Serious: Yes (Death)
  Sender: FDA-Public Use
  Company Number: None

PATIENT
  Age: 86 Year
  Sex: Male

DRUGS (1)
  1. CARBIDOPA\LEVODOPA [Suspect]
     Active Substance: CARBIDOPA\LEVODOPA
     Indication: Parkinson^s disease
     Dosage: 3X1.5 TABLETS PER DAY
     Route: 048
     Dates: start: 20220718, end: 20220719

REACTIONS (4)
  - Movement disorder [Fatal]
  - Vomiting [Fatal]
  - Confusional state [Fatal]
  - Language disorder [Fatal]

NARRATIVE: CASE EVENT DATE: 20220718
